FAERS Safety Report 20662834 (Version 1)
Quarter: 2022Q1

REPORT INFORMATION
  Report Type: Spontaneous
  Country: US (occurrence: None)
  Receive Date: 20220331
  Receipt Date: 20220331
  Transmission Date: 20220424
  Serious: Yes (Other)
  Sender: FDA-Public Use
  Company Number: None

PATIENT
  Age: 70 Year
  Sex: Female
  Weight: 77.4 kg

DRUGS (1)
  1. PACLITAXEL [Suspect]
     Active Substance: PACLITAXEL
     Indication: Ovarian cancer
     Dosage: OTHER FREQUENCY : EVERY 3 WEEKS;?
     Route: 042
     Dates: start: 20220330

REACTIONS (2)
  - Discomfort [None]
  - Skin tightness [None]

NARRATIVE: CASE EVENT DATE: 20220330
